FAERS Safety Report 23469763 (Version 2)
Quarter: 2025Q2

REPORT INFORMATION
  Report Type: Report from Study
  Country: US (occurrence: US)
  Receive Date: 20240202
  Receipt Date: 20250408
  Transmission Date: 20250716
  Serious: Yes (Death, Hospitalization, Other)
  Sender: TAKEDA
  Company Number: US-TAKEDA-2024TUS008654

PATIENT
  Age: 79 Year
  Sex: Male

DRUGS (21)
  1. IXAZOMIB [Suspect]
     Active Substance: IXAZOMIB
     Indication: Plasma cell myeloma
  2. IXAZOMIB [Suspect]
     Active Substance: IXAZOMIB
  3. MORPHINE [Concomitant]
     Active Substance: MORPHINE
  4. VITAMIN B12 [Concomitant]
     Active Substance: CYANOCOBALAMIN
  5. CALCIUM CARBONATE [Concomitant]
     Active Substance: CALCIUM CARBONATE
  6. FISH OIL [Concomitant]
     Active Substance: FISH OIL
  7. VITAMIN B [Concomitant]
     Active Substance: VITAMIN B
  8. TAMSULOSIN [Concomitant]
     Active Substance: TAMSULOSIN
  9. WARFARIN [Concomitant]
     Active Substance: WARFARIN
  10. DONEPEZIL [Concomitant]
     Active Substance: DONEPEZIL
  11. DIGOXIN [Concomitant]
     Active Substance: DIGOXIN
  12. MONTELUKAST [Concomitant]
     Active Substance: MONTELUKAST
  13. METOCLOPRAMIDE [Concomitant]
     Active Substance: METOCLOPRAMIDE
  14. ATORVASTATIN [Concomitant]
     Active Substance: ATORVASTATIN
  15. LORATADINE [Concomitant]
     Active Substance: LORATADINE
  16. MAGNESIUM [Concomitant]
     Active Substance: MAGNESIUM
  17. PRAMIPEXOLE [Concomitant]
     Active Substance: PRAMIPEXOLE
  18. ZOLPIDEM [Concomitant]
     Active Substance: ZOLPIDEM TARTRATE
  19. FERROUS SULFATE [Concomitant]
     Active Substance: FERROUS SULFATE
  20. LOPERAMIDE [Concomitant]
     Active Substance: LOPERAMIDE
  21. FOLIC ACID [Concomitant]
     Active Substance: FOLIC ACID

REACTIONS (3)
  - Death [Fatal]
  - Respiratory syncytial virus infection [Recovering/Resolving]
  - Pneumonia [Recovering/Resolving]

NARRATIVE: CASE EVENT DATE: 20231226
